FAERS Safety Report 20107085 (Version 1)
Quarter: 2021Q4

REPORT INFORMATION
  Report Type: Spontaneous
  Country: US (occurrence: None)
  Receive Date: 20211123
  Receipt Date: 20211123
  Transmission Date: 20220303
  Serious: No
  Sender: FDA-Public Use
  Company Number: None

PATIENT
  Age: 85 Year
  Sex: Male

DRUGS (10)
  1. DOFETILIDE [Suspect]
     Active Substance: DOFETILIDE
     Indication: Product used for unknown indication
     Dosage: OTHER QUANTITY : 500MCG;?FREQUENCY : TWICE A DAY;?
     Route: 048
     Dates: start: 20180117
  2. CARBIDOPA\LEVODOPA [Suspect]
     Active Substance: CARBIDOPA\LEVODOPA
  3. CLOPIDOGREL [Suspect]
     Active Substance: CLOPIDOGREL BISULFATE
  4. ELIQUIS [Suspect]
     Active Substance: APIXABAN
  5. FUROSEMIDE [Suspect]
     Active Substance: FUROSEMIDE
  6. LEVOTHYROXINE [Suspect]
     Active Substance: LEVOTHYROXINE
  7. LOSARTAN POTASSIUM [Suspect]
     Active Substance: LOSARTAN POTASSIUM
  8. PREDNISONE [Concomitant]
  9. SIMVASTATIN [Suspect]
     Active Substance: SIMVASTATIN
  10. TAMSULOSIN [Suspect]
     Active Substance: TAMSULOSIN

REACTIONS (1)
  - Hospitalisation [None]

NARRATIVE: CASE EVENT DATE: 20211122
